FAERS Safety Report 8230462-3 (Version None)
Quarter: 2012Q1

REPORT INFORMATION
  Report Type: 
  Country: None (occurrence: None)
  Receive Date: 20120320
  Receipt Date: 20120308
  Transmission Date: 20120608
  Serious: Yes (Hospitalization)
  Sender: FDA-Public Use
  Company Number: 2012-000985

PATIENT
  Age: 89 Year
  Sex: Female

DRUGS (9)
  1. ACTONEL [Suspect]
     Dosage: 150 MG ONCE MONTHLY, ORAL
     Route: 048
     Dates: end: 20120103
  2. LIPITOR [Concomitant]
  3. VITAMIN E [Concomitant]
  4. OMEPRADEX (OMEPRAZOLE) [Concomitant]
  5. LEVOTHYROXINE SODIUM [Concomitant]
  6. VITAMIN D [Concomitant]
  7. VITAMIN A [Concomitant]
  8. CALCIUM CARBONATE [Concomitant]
  9. VITAMIN B12 (VYANOCOBALAMIN) [Concomitant]

REACTIONS (5)
  - PYREXIA [None]
  - DIARRHOEA [None]
  - GASTROENTERITIS [None]
  - VOMITING [None]
  - CHILLS [None]
